FAERS Safety Report 17084064 (Version 1)
Quarter: 2019Q4

REPORT INFORMATION
  Report Type: Spontaneous
  Country: DE (occurrence: DE)
  Receive Date: 20191127
  Receipt Date: 20191127
  Transmission Date: 20200122
  Serious: Yes (Hospitalization)
  Sender: FDA-Public Use
  Company Number: DE-MYLANLABS-2019M1115671

PATIENT
  Age: 84 Year
  Sex: Male

DRUGS (10)
  1. ATROVENT [Concomitant]
     Active Substance: IPRATROPIUM BROMIDE
     Dosage: NK MG, 4-4-4-0
     Route: 055
  2. ELIQUIS [Concomitant]
     Active Substance: APIXABAN
     Dosage: 25 MILLIGRAM, BID
     Route: 065
  3. METOPROLOL. [Suspect]
     Active Substance: METOPROLOL
     Indication: PRODUCT USED FOR UNKNOWN INDICATION
     Dosage: 95 MILLIGRAM (0.5-0-0.5-0)
     Route: 065
  4. OXYTETRACYCLIN PREDNISOLON [Concomitant]
     Dosage: UNK, BID (1-0-1-0)
     Route: 047
  5. SALBUTAMOL [Concomitant]
     Active Substance: ALBUTEROL
     Dosage: NK MG, 20-20-20-0
     Route: 055
  6. FUROSEMID                          /00032601/ [Concomitant]
     Active Substance: FUROSEMIDE
     Dosage: 40 MG, 1-0-0-0
     Route: 065
  7. HYLO-VISION [Concomitant]
     Active Substance: HYALURONATE SODIUM
     Dosage: NK MG, 3-3-3-3
     Route: 047
  8. SIMVASTATIN. [Concomitant]
     Active Substance: SIMVASTATIN
     Dosage: 10 MILLIGRAM, QD (0-0-1-0)
     Route: 065
  9. CYANOCOBALAMIN. [Concomitant]
     Active Substance: CYANOCOBALAMIN
     Dosage: 1000 IE, 1 X/MONAT
     Route: 030
  10. DIGITOXIN [Concomitant]
     Active Substance: DIGITOXIN
     Dosage: UNK, QD (1-0-0-0)
     Route: 065

REACTIONS (2)
  - Cardiac failure [Unknown]
  - Product prescribing error [Unknown]

NARRATIVE: CASE EVENT DATE: 20170710
